FAERS Safety Report 25873542 (Version 1)
Quarter: 2025Q4

REPORT INFORMATION
  Report Type: Spontaneous
  Country: US (occurrence: None)
  Receive Date: 20251002
  Receipt Date: 20251002
  Transmission Date: 20260117
  Serious: Yes (Disabling, Other)
  Sender: FDA-CTU
  Company Number: None

PATIENT
  Age: 35 Year
  Sex: Female
  Weight: 73.35 kg

DRUGS (1)
  1. CEFUROXIME [Suspect]
     Active Substance: CEFUROXIME
     Indication: Rheumatoid arthritis
     Dates: start: 20250729, end: 20250805

REACTIONS (10)
  - Pain [None]
  - Pain in extremity [None]
  - Gait disturbance [None]
  - Mobility decreased [None]
  - Sleep disorder [None]
  - Tremor [None]
  - Tremor [None]
  - Gait disturbance [None]
  - Dyskinesia [None]
  - Loss of personal independence in daily activities [None]

NARRATIVE: CASE EVENT DATE: 20250808
